FAERS Safety Report 14144143 (Version 2)
Quarter: 2018Q1

REPORT INFORMATION
  Report Type: Spontaneous
  Country: NO (occurrence: NO)
  Receive Date: 20171031
  Receipt Date: 20180119
  Transmission Date: 20180508
  Serious: Yes (Hospitalization, Disabling)
  Sender: FDA-Public Use
  Company Number: NO-AUROBINDO-AUR-APL-2017-42413

PATIENT
  Age: 64 Year
  Sex: Female

DRUGS (7)
  1. FLUOROURACIL. [Concomitant]
     Active Substance: FLUOROURACIL
     Indication: BREAST CANCER
     Route: 042
     Dates: start: 2005, end: 2005
  2. CYCLOPHOSPHAMIDE. [Concomitant]
     Active Substance: CYCLOPHOSPHAMIDE
     Indication: BREAST CANCER
     Route: 065
     Dates: start: 2005, end: 2005
  3. EPIRUBICIN [Suspect]
     Active Substance: EPIRUBICIN
     Indication: BREAST CANCER
     Dosage: 60 MG/M2, UNK
     Route: 041
     Dates: start: 2005, end: 2005
  4. NAPROXEN TABLET [Suspect]
     Active Substance: NAPROXEN
     Indication: MUSCULOSKELETAL DISCOMFORT
     Dosage: UNK
     Route: 048
     Dates: start: 20170831, end: 20170904
  5. PARACETAMOL [Concomitant]
     Active Substance: ACETAMINOPHEN
     Indication: MUSCULOSKELETAL DISCOMFORT
     Route: 048
     Dates: start: 20170831, end: 20170904
  6. TAMOXIFEN [Concomitant]
     Active Substance: TAMOXIFEN
     Indication: BREAST CANCER
     Dosage: 20 MG, UNK
     Route: 048
     Dates: start: 2006, end: 2011
  7. TRAMADOL. [Concomitant]
     Active Substance: TRAMADOL
     Indication: MUSCULOSKELETAL DISCOMFORT
     Route: 048
     Dates: start: 20170831, end: 20170904

REACTIONS (2)
  - Congestive cardiomyopathy [Recovered/Resolved with Sequelae]
  - Cardiac failure acute [Recovered/Resolved with Sequelae]

NARRATIVE: CASE EVENT DATE: 20170905
